FAERS Safety Report 25319087 (Version 1)
Quarter: 2025Q2

REPORT INFORMATION
  Report Type: Spontaneous
  Country: US (occurrence: None)
  Receive Date: 20250514
  Receipt Date: 20250514
  Transmission Date: 20250716
  Serious: No
  Sender: FDA-CTU
  Company Number: None

PATIENT
  Age: 39 Year
  Sex: Female
  Weight: 63 kg

DRUGS (1)
  1. METRONIDAZOLE [Suspect]
     Active Substance: METRONIDAZOLE
     Indication: Clostridium difficile infection
     Dosage: FREQUENCY : 3 TIMES A DAY;?
     Route: 048
     Dates: start: 20250327, end: 20250403

REACTIONS (5)
  - Anxiety [None]
  - Tinnitus [None]
  - Muscular weakness [None]
  - Duodenitis [None]
  - Dizziness [None]

NARRATIVE: CASE EVENT DATE: 20250327
